FAERS Safety Report 22010215 (Version 1)
Quarter: 2023Q1

REPORT INFORMATION
  Report Type: Spontaneous
  Country: CA (occurrence: CA)
  Receive Date: 20230220
  Receipt Date: 20230220
  Transmission Date: 20230418
  Serious: Yes (Death)
  Sender: FDA-Public Use
  Company Number: None

PATIENT
  Age: 70 Year

DRUGS (4)
  1. DOCETAXEL [Suspect]
     Active Substance: DOCETAXEL
     Indication: ROS1 gene rearrangement
     Dosage: CYCLICAL
     Route: 065
  2. BINIMETINIB [Concomitant]
     Active Substance: BINIMETINIB
     Dosage: 2 EVERY 1 DAYS
  3. ENCORAFENIB [Concomitant]
     Active Substance: ENCORAFENIB
     Dosage: 1 EVERY 1 DAYS
  4. DOCETAXEL [Suspect]
     Active Substance: DOCETAXEL
     Indication: ROS1 gene rearrangement
     Route: 065

REACTIONS (2)
  - Death [Fatal]
  - Neoplasm progression [Fatal]
